FAERS Safety Report 16635136 (Version 1)
Quarter: 2019Q3

REPORT INFORMATION
  Report Type: Spontaneous
  Country: IS (occurrence: IS)
  Receive Date: 20190726
  Receipt Date: 20190726
  Transmission Date: 20191004
  Serious: Yes (Life-Threatening, Hospitalization, Other)
  Sender: FDA-Public Use
  Company Number: IS-GLAXOSMITHKLINE-IS2019134073

PATIENT
  Age: 30 Year
  Sex: Female
  Weight: 55 kg

DRUGS (4)
  1. LAMICTAL [Suspect]
     Active Substance: LAMOTRIGINE
     Indication: BIPOLAR I DISORDER
     Dosage: 25 MG X 2 FOR 2 WEEKS
     Route: 065
     Dates: start: 20190506, end: 20190520
  2. LAMICTAL [Suspect]
     Active Substance: LAMOTRIGINE
     Dosage: 100 MG, DAILY DOSE 1 PER EVENING.
     Route: 065
     Dates: start: 20190608, end: 20190611
  3. LAMICTAL [Suspect]
     Active Substance: LAMOTRIGINE
     Dosage: 50 MG X 2
     Route: 065
     Dates: start: 20190521, end: 20190607
  4. MODAFINIL. [Concomitant]
     Active Substance: MODAFINIL
     Indication: BIPOLAR I DISORDER
     Dosage: 100 MG TABLETS, 2 PER DAY
     Route: 065
     Dates: start: 20190205, end: 20190611

REACTIONS (13)
  - Rash maculo-papular [Recovering/Resolving]
  - Mucosal inflammation [Recovering/Resolving]
  - Investigation [Recovered/Resolved]
  - Blister [Recovering/Resolving]
  - Pyrexia [Recovering/Resolving]
  - Influenza like illness [Recovering/Resolving]
  - Oral pain [Recovering/Resolving]
  - Erythema multiforme [Recovering/Resolving]
  - Rash pruritic [Recovering/Resolving]
  - Dysphagia [Recovering/Resolving]
  - Eye pruritus [Recovering/Resolving]
  - Stevens-Johnson syndrome [Recovering/Resolving]
  - Ocular hyperaemia [Recovering/Resolving]

NARRATIVE: CASE EVENT DATE: 20190609
